FAERS Safety Report 8339481-X (Version None)
Quarter: 2012Q2

REPORT INFORMATION
  Report Type: 
  Country: None (occurrence: None)
  Receive Date: 20120507
  Receipt Date: 20120426
  Transmission Date: 20120825
  Serious: Yes (Hospitalization, Other)
  Sender: FDA-Public Use
  Company Number: PHHY2012AR036483

PATIENT
  Sex: Female

DRUGS (2)
  1. EXFORGE [Suspect]
     Indication: HYPERTENSION
     Dosage: 1 DF (160 MG VALS AND 5 MG AMLO), DAILY
     Dates: start: 20100101
  2. LEVOTHYROXINE SODIUM [Concomitant]
     Dosage: 75 MG, UNK

REACTIONS (3)
  - EYE HAEMORRHAGE [None]
  - ARRHYTHMIA [None]
  - BLOOD PRESSURE INCREASED [None]
